FAERS Safety Report 8904672 (Version 1)
Quarter: 2012Q4

REPORT INFORMATION
  Report Type: 
  Country: US (occurrence: US)
  Receive Date: 20121113
  Receipt Date: 20121113
  Transmission Date: 20130627
  Serious: No
  Sender: FDA-Public Use
  Company Number: US-GLAXOSMITHKLINE-A0955763A

PATIENT
  Age: 75 Year
  Sex: Male

DRUGS (3)
  1. COREG [Suspect]
     Indication: LEFT VENTRICULAR DYSFUNCTION
     Route: 048
     Dates: start: 2003
  2. DIGOXIN [Concomitant]
  3. ASPIRIN [Concomitant]

REACTIONS (4)
  - Nausea [Not Recovered/Not Resolved]
  - Dizziness [Unknown]
  - Paraesthesia [Unknown]
  - Paraesthesia [Unknown]
